FAERS Safety Report 9995260 (Version 1)
Quarter: 2014Q1

REPORT INFORMATION
  Report Type: Spontaneous
  Country: US (occurrence: None)
  Receive Date: 20140214
  Receipt Date: 20140214
  Transmission Date: 20141002
  Serious: Yes (Other)
  Sender: FDA-Public Use
  Company Number: US-013724

PATIENT
  Age: 71 Year
  Sex: Male

DRUGS (9)
  1. PREPOPIK [Suspect]
     Indication: BOWEL PREPARATION
     Dosage: FIRST DOSE 4PM SECOND DOSE 10PM
     Dates: start: 20131114
  2. HUMALOG [Concomitant]
  3. LANTUS [Concomitant]
  4. COSOPT [Concomitant]
  5. GABAPENTIN [Concomitant]
  6. ULTRAM [Concomitant]
  7. ASPIRIN [Concomitant]
  8. DOXAZOCIN [Concomitant]
  9. VENLAFAXINE [Concomitant]

REACTIONS (1)
  - Drug ineffective [None]
